FAERS Safety Report 8977395 (Version 1)
Quarter: 2012Q4

REPORT INFORMATION
  Report Type: 
  Country: US (occurrence: US)
  Receive Date: 20121220
  Receipt Date: 20121220
  Transmission Date: 20130627
  Serious: No
  Sender: FDA-Public Use
  Company Number: US-009507513-1212USA005278

PATIENT
  Sex: Female

DRUGS (2)
  1. MIRALAX [Suspect]
     Indication: PRODUCT USED FOR UNKNOWN INDICATION
     Dosage: UNK, Once
     Route: 048
     Dates: start: 20121003
  2. MIRALAX [Suspect]
     Dosage: UNK, Once
     Route: 048
     Dates: start: 20121006

REACTIONS (1)
  - Nausea [Unknown]
